FAERS Safety Report 10080319 (Version 1)
Quarter: 2014Q2

REPORT INFORMATION
  Report Type: Report from Study
  Country: US (occurrence: US)
  Receive Date: 20140415
  Receipt Date: 20140415
  Transmission Date: 20141212
  Serious: Yes (Other)
  Sender: FDA-Public Use
  Company Number: PHEH2014US007291

PATIENT
  Sex: Female
  Weight: 87.98 kg

DRUGS (1)
  1. GILENYA [Suspect]
     Indication: MULTIPLE SCLEROSIS
     Dosage: 0.5 MG, QD
     Route: 048
     Dates: start: 20110720

REACTIONS (5)
  - Fall [Unknown]
  - Periorbital contusion [Unknown]
  - Memory impairment [Unknown]
  - Gait disturbance [Unknown]
  - Asthenia [Unknown]
